FAERS Safety Report 7790626-X (Version None)
Quarter: 2011Q3

REPORT INFORMATION
  Report Type: 
  Country: None (occurrence: None)
  Receive Date: 20110930
  Receipt Date: 20110920
  Transmission Date: 20111222
  Serious: Yes (Hospitalization, Other)
  Sender: FDA-Public Use
  Company Number: JP-ABBOTT-10P-087-0624687-00

PATIENT
  Age: 80 Year
  Sex: Female

DRUGS (14)
  1. ACETAMINOPHEN [Suspect]
     Indication: ERYTHEMA MULTIFORME
  2. DILTIAZEM HCL [Suspect]
     Indication: PRODUCT USED FOR UNKNOWN INDICATION
     Route: 048
  3. DILTIAZEM HCL [Suspect]
     Route: 048
  4. DILTIAZEM HCL [Concomitant]
     Route: 048
  5. SUCRALFATE [Concomitant]
     Indication: PRODUCT USED FOR UNKNOWN INDICATION
  6. CEFDINIR [Suspect]
     Indication: PRODUCT USED FOR UNKNOWN INDICATION
     Route: 048
  7. MICARDIS [Suspect]
     Indication: PRODUCT USED FOR UNKNOWN INDICATION
     Route: 048
  8. VOLTAREN [Suspect]
     Indication: HYPERTHERMIA
     Route: 054
  9. VOLTAREN [Suspect]
     Indication: ERYTHEMA MULTIFORME
  10. SUCRALFATE [Suspect]
     Indication: HYPERTHERMIA
  11. SUCRALFATE [Suspect]
     Indication: ERYTHEMA MULTIFORME
  12. ACETAMINOPHEN [Concomitant]
     Indication: PRODUCT USED FOR UNKNOWN INDICATION
  13. ACETAMINOPHEN [Suspect]
     Indication: HYPERTHERMIA
  14. VOLTAREN [Concomitant]
     Indication: PRODUCT USED FOR UNKNOWN INDICATION

REACTIONS (1)
  - ACUTE GENERALISED EXANTHEMATOUS PUSTULOSIS [None]
